FAERS Safety Report 10247635 (Version 1)
Quarter: 2014Q2

REPORT INFORMATION
  Report Type: Report from Study
  Country: US (occurrence: US)
  Receive Date: 20140619
  Receipt Date: 20140619
  Transmission Date: 20141212
  Serious: Yes (Hospitalization)
  Sender: FDA-Public Use
  Company Number: US-ACTELION-A-NJ2014-100168

PATIENT
  Age: 82 Year
  Sex: Female

DRUGS (3)
  1. TRACLEER [Suspect]
     Indication: PULMONARY ARTERIAL HYPERTENSION
     Dosage: UNK
     Route: 048
     Dates: start: 20140319, end: 2014
  2. TRACLEER [Suspect]
     Dosage: UNK
     Route: 048
     Dates: start: 2014
  3. SILDENAFIL [Concomitant]

REACTIONS (3)
  - Fall [Recovered/Resolved]
  - Limb injury [Recovered/Resolved]
  - Dizziness [Recovered/Resolved]
